FAERS Safety Report 14168217 (Version 4)
Quarter: 2018Q1

REPORT INFORMATION
  Report Type: Spontaneous
  Country: US (occurrence: US)
  Receive Date: 20171108
  Receipt Date: 20180206
  Transmission Date: 20180508
  Serious: Yes (Hospitalization, Other)
  Sender: FDA-Public Use
  Company Number: PHEH2017US035656

PATIENT
  Age: 81 Year
  Sex: Female
  Weight: 59 kg

DRUGS (6)
  1. IBRANCE [Suspect]
     Active Substance: PALBOCICLIB
     Indication: BREAST CANCER
     Dosage: 125 MG, QD
     Route: 048
     Dates: start: 20170718, end: 20170822
  2. IBRANCE [Suspect]
     Active Substance: PALBOCICLIB
     Indication: METASTASES TO BONE
     Dosage: 100 MG, QD
     Route: 048
     Dates: start: 20170821, end: 20170822
  3. TETRACYCLINE [Concomitant]
     Active Substance: TETRACYCLINE
     Indication: PRODUCT USED FOR UNKNOWN INDICATION
     Route: 065
  4. MEROPENEM. [Concomitant]
     Active Substance: MEROPENEM
     Indication: PRODUCT USED FOR UNKNOWN INDICATION
     Dosage: UNK
     Route: 065
  5. VANCOMYCIN [Concomitant]
     Active Substance: VANCOMYCIN
     Indication: PRODUCT USED FOR UNKNOWN INDICATION
     Dosage: UNK
     Route: 042
  6. LETROZOLE. [Suspect]
     Active Substance: LETROZOLE
     Indication: BREAST CANCER
     Dosage: 2.5 MG, QD
     Route: 048
     Dates: start: 20170705, end: 20171115

REACTIONS (37)
  - Hyperpyrexia [Recovered/Resolved]
  - Decreased appetite [Unknown]
  - Neutropenia [Unknown]
  - Hepatic enzyme increased [Not Recovered/Not Resolved]
  - Hyperhidrosis [Not Recovered/Not Resolved]
  - Eosinophilia [Unknown]
  - Abdominal pain [Unknown]
  - Pyrexia [Unknown]
  - Neutropenia [Recovered/Resolved]
  - Aspartate aminotransferase increased [Recovered/Resolved]
  - Bacteraemia [Unknown]
  - Nausea [Unknown]
  - Dehydration [Unknown]
  - Eosinophil count increased [Unknown]
  - Cardiovascular disorder [Unknown]
  - Tooth disorder [Unknown]
  - Chest discomfort [Unknown]
  - Sinus tachycardia [Unknown]
  - Blood immunoglobulin E increased [Unknown]
  - Vomiting [Unknown]
  - Diarrhoea [Unknown]
  - Sepsis [Unknown]
  - Weight decreased [Unknown]
  - Pruritus [Unknown]
  - Fatigue [Unknown]
  - Aspartate aminotransferase increased [Unknown]
  - Alanine aminotransferase increased [Unknown]
  - Asthenia [Unknown]
  - Chills [Recovered/Resolved]
  - Eosinophilia [Recovered/Resolved]
  - Mental status changes [Unknown]
  - Drug hypersensitivity [Unknown]
  - Anaemia [Unknown]
  - Leukopenia [Unknown]
  - Hepatic failure [Unknown]
  - Confusional state [Unknown]
  - Vitamin B12 increased [Unknown]

NARRATIVE: CASE EVENT DATE: 20170822
